FAERS Safety Report 9107872 (Version 3)
Quarter: 2013Q2

REPORT INFORMATION
  Report Type: Spontaneous
  Country: US (occurrence: US)
  Receive Date: 20130221
  Receipt Date: 20130520
  Transmission Date: 20140414
  Serious: Yes (Death, Hospitalization, Disabling, Other)
  Sender: FDA-Public Use
  Company Number: US-MILLENNIUM PHARMACEUTICALS, INC.-2013-01298

PATIENT
  Age: 64 Year
  Sex: Female

DRUGS (20)
  1. VELCADE [Suspect]
     Indication: PLASMA CELL MYELOMA
     Dosage: 2.5 MG, CYCLIC
     Route: 058
     Dates: start: 201211, end: 20130121
  2. REVLIMID [Suspect]
     Indication: PLASMA CELL MYELOMA
     Dosage: 5 MG, CYCLIC
     Route: 065
  3. DEXAMETHASONE [Suspect]
     Indication: PLASMA CELL MYELOMA
     Dosage: UNK, CYCLIC
     Route: 065
  4. K-DUR [Suspect]
     Indication: HYPOKALAEMIA
     Dosage: 40 MEQ, UNK
  5. CYMBALTA [Concomitant]
     Indication: PRODUCT USED FOR UNKNOWN INDICATION
     Dosage: 60 MG, QD
     Route: 065
  6. BACTRIM DS [Concomitant]
     Indication: PROPHYLAXIS
     Dosage: 1 MG, 3/WEEK
  7. ACYCLOVIR                          /00587301/ [Concomitant]
     Indication: HERPES SIMPLEX
     Dosage: 200 MG, BID
  8. ACYCLOVIR                          /00587301/ [Concomitant]
     Dosage: 1000 MG, QD
  9. METOPROLOL [Concomitant]
     Indication: PRODUCT USED FOR UNKNOWN INDICATION
     Dosage: 100 MG, BID
  10. DICLOFENAC [Concomitant]
     Indication: PRODUCT USED FOR UNKNOWN INDICATION
     Dosage: 75 MG, BID
  11. PRAVASTATIN [Concomitant]
     Indication: PRODUCT USED FOR UNKNOWN INDICATION
     Dosage: 40 MG, QD
  12. CLONIDINE [Concomitant]
     Indication: PRODUCT USED FOR UNKNOWN INDICATION
     Dosage: 0.2 MG, QD
  13. TYLENOL PM                         /01088101/ [Concomitant]
     Indication: PRODUCT USED FOR UNKNOWN INDICATION
     Dosage: UNK, PRN
  14. ALLOPURINOL [Concomitant]
     Indication: PRODUCT USED FOR UNKNOWN INDICATION
     Dosage: 300 MG, QD
  15. ZOFRAN                             /00955301/ [Concomitant]
     Indication: NAUSEA
     Dosage: 4 MG, PRN
  16. COMPAZINE                          /00013302/ [Concomitant]
     Indication: NAUSEA
     Dosage: 10 MG, PRN
  17. MEGACE [Concomitant]
     Indication: PRODUCT USED FOR UNKNOWN INDICATION
     Dosage: 400 MG, BID
  18. AMBIEN [Concomitant]
     Indication: PRODUCT USED FOR UNKNOWN INDICATION
     Dosage: 5 MG, QD
     Route: 048
  19. AUGMENTIN                          /00756801/ [Concomitant]
     Indication: PRODUCT USED FOR UNKNOWN INDICATION
  20. LASIX                              /00032601/ [Concomitant]
     Indication: OEDEMA PERIPHERAL

REACTIONS (11)
  - Multi-organ failure [Fatal]
  - Toxic epidermal necrolysis [Fatal]
  - Tachycardia [Unknown]
  - Hypokalaemia [Unknown]
  - Hypotension [Unknown]
  - Oedema peripheral [Unknown]
  - Asthenia [Unknown]
  - Dyspnoea [Unknown]
  - Renal failure acute [Unknown]
  - Dehydration [Unknown]
  - Chills [Unknown]
